FAERS Safety Report 10152212 (Version 1)
Quarter: 2014Q2

REPORT INFORMATION
  Report Type: Spontaneous
  Country: DE (occurrence: None)
  Receive Date: 20140501
  Receipt Date: 20140501
  Transmission Date: 20141212
  Serious: Yes (Hospitalization, Disabling, Other)
  Sender: FDA-Public Use
  Company Number: 2014/024

PATIENT
  Age: 73 Year
  Sex: Male
  Weight: 93 kg

DRUGS (1)
  1. LEVETIRACETAM (NO PREF. NAME) [Suspect]
     Indication: PARTIAL SEIZURES WITH SECONDARY GENERALISATION

REACTIONS (14)
  - Fatigue [None]
  - Foot fracture [None]
  - Stupor [None]
  - Agitation [None]
  - Aggression [None]
  - Coma scale abnormal [None]
  - Skin ulcer [None]
  - Anaemia [None]
  - Somnolence [None]
  - Overdose [None]
  - Peritoneal dialysis [None]
  - Personality change [None]
  - Pulse absent [None]
  - C-reactive protein increased [None]
